FAERS Safety Report 6072269-1 (Version None)
Quarter: 2009Q1

REPORT INFORMATION
  Report Type: 
  Country: None (occurrence: None)
  Receive Date: 20090206
  Receipt Date: 20090206
  Transmission Date: 20090719
  Serious: No
  Sender: FDA-Public Use
  Company Number: None

PATIENT
  Age: 75 Year
  Sex: Female
  Weight: 75 kg

DRUGS (1)
  1. HEPARIN [Suspect]
     Indication: HEART VALVE REPLACEMENT
     Dosage: TITRATE BASED ON PTT IV
     Route: 042
     Dates: start: 20090119, end: 20090202

REACTIONS (1)
  - HEPARIN-INDUCED THROMBOCYTOPENIA [None]
